FAERS Safety Report 4889684-1 (Version None)
Quarter: 2006Q1

REPORT INFORMATION
  Report Type: 
  Country: None (occurrence: None)
  Receive Date: 20060120
  Receipt Date: 20060116
  Transmission Date: 20060701
  Serious: Yes (Other)
  Sender: FDA-Public Use
  Company Number: 2005-12-1195

PATIENT
  Sex: Male

DRUGS (2)
  1. PEGINTRON (PEGINTRON ALFA-2B) INJECTABLE [Suspect]
     Indication: HEPATITIS C
     Dosage: UNKNOWN; SUBCUTANEOUS
     Route: 058
     Dates: start: 20051123
  2. REBETOL [Suspect]
     Indication: HEPATITIS C
     Dosage: UNKNOWN; ORAL
     Route: 048
     Dates: start: 20051123

REACTIONS (2)
  - ALANINE AMINOTRANSFERASE INCREASED [None]
  - ASPARTATE AMINOTRANSFERASE INCREASED [None]
